FAERS Safety Report 8681986 (Version 2)
Quarter: 2014Q2

REPORT INFORMATION
  Report Type: Spontaneous
  Country: US (occurrence: US)
  Receive Date: 20120725
  Receipt Date: 20140520
  Transmission Date: 20141212
  Serious: Yes (Other)
  Sender: FDA-Public Use
  Company Number: US-ROCHE-1080273

PATIENT
  Sex: Male

DRUGS (1)
  1. ERIVEDGE [Suspect]
     Indication: SKIN CANCER
     Route: 048
     Dates: start: 20131015

REACTIONS (3)
  - Angioedema [Unknown]
  - Swollen tongue [Not Recovered/Not Resolved]
  - Fatigue [Unknown]
